FAERS Safety Report 8917012 (Version 2)
Quarter: 2013Q1

REPORT INFORMATION
  Report Type: Report from Study
  Country: DE (occurrence: DE)
  Receive Date: 20121120
  Receipt Date: 20130114
  Transmission Date: 20140127
  Serious: Yes (Other)
  Sender: FDA-Public Use
  Company Number: DE-009507513-1211DEU006607

PATIENT
  Age: 43 Year
  Sex: Male

DRUGS (3)
  1. RIBAVIRIN [Suspect]
     Indication: CHRONIC HEPATITIS C
     Dosage: UNK
     Route: 048
     Dates: start: 20121012
  2. PEGASYS [Suspect]
     Indication: CHRONIC HEPATITIS C
     Dosage: 180 MICROGRAM, QW
     Route: 048
     Dates: start: 20121012
  3. VICTRELIS [Suspect]
     Indication: HEPATITIS C
     Dosage: UNK UNK, TID
     Route: 048
     Dates: start: 20121113

REACTIONS (1)
  - Deafness [Recovering/Resolving]
